FAERS Safety Report 20589585 (Version 1)
Quarter: 2022Q1

REPORT INFORMATION
  Report Type: Spontaneous
  Country: US (occurrence: None)
  Receive Date: 20220311
  Receipt Date: 20220311
  Transmission Date: 20220423
  Serious: No
  Sender: FDA-Public Use
  Company Number: None

PATIENT
  Age: 34 Year
  Sex: Female
  Weight: 83.25 kg

DRUGS (8)
  1. OCREVUS [Suspect]
     Active Substance: OCRELIZUMAB
     Indication: Multiple sclerosis
     Dosage: OTHER FREQUENCY : EVERY 6 MONTHS;?
     Route: 042
     Dates: start: 20220218
  2. HERBALS\TURMERIC [Concomitant]
     Active Substance: HERBALS\TURMERIC
  3. VITAMINS [Concomitant]
     Active Substance: VITAMINS
  4. GINGER [Concomitant]
     Active Substance: GINGER
  5. FLONASE NASAL SUSPENSION [Concomitant]
  6. BREO ELLIPTA [Concomitant]
     Active Substance: FLUTICASONE FUROATE\VILANTEROL TRIFENATATE
  7. BIOTIN [Concomitant]
     Active Substance: BIOTIN
  8. APPLE CIDER VINEGAR TABLETALBUTEROL SULFATE NEBULIZER [Concomitant]

REACTIONS (4)
  - Throat irritation [None]
  - Dysphagia [None]
  - Oral pain [None]
  - Oropharyngeal pain [None]

NARRATIVE: CASE EVENT DATE: 20220308
